FAERS Safety Report 7389470-7 (Version None)
Quarter: 2011Q2

REPORT INFORMATION
  Report Type: 
  Country: None (occurrence: None)
  Receive Date: 20110401
  Receipt Date: 20110330
  Transmission Date: 20111010
  Serious: Yes (Other)
  Sender: FDA-Public Use
  Company Number: FR-ABBOTT-11P-056-0713139-00

PATIENT
  Sex: Male

DRUGS (3)
  1. TUSSIDANE [Concomitant]
     Indication: ANTITUSSIVE THERAPY
     Dosage: DAILY DOSE: 3 DOSAGE FORMS
     Dates: start: 20110215, end: 20110220
  2. MONOZECLAR [Suspect]
     Indication: NASOPHARYNGITIS
     Route: 048
     Dates: start: 20110215, end: 20110220
  3. ACETAMINOPHEN [Concomitant]
     Indication: ANTIPYRESIS
     Dates: start: 20110215, end: 20110217

REACTIONS (4)
  - ALANINE AMINOTRANSFERASE INCREASED [None]
  - HEPATITIS [None]
  - CHOLESTASIS [None]
  - ASPARTATE AMINOTRANSFERASE INCREASED [None]
